FAERS Safety Report 15918551 (Version 1)
Quarter: 2019Q1

REPORT INFORMATION
  Report Type: Spontaneous
  Country: FR (occurrence: FR)
  Receive Date: 20190205
  Receipt Date: 20190205
  Transmission Date: 20190417
  Serious: Yes (Hospitalization)
  Sender: FDA-Public Use
  Company Number: FR-MYLANLABS-2019M1009049

PATIENT
  Age: 23 Year
  Sex: Male
  Weight: 55 kg

DRUGS (3)
  1. PHENERGAN [Suspect]
     Active Substance: PROMETHAZINE HYDROCHLORIDE
     Indication: ABNORMAL BEHAVIOUR
     Dosage: 45 MILLIGRAM, QD
     Route: 048
     Dates: start: 20180629, end: 20180707
  2. RISPERIDONE MYLAN 2 MG, COMPRIM? PELLICUL? S?CABLE [Suspect]
     Active Substance: RISPERIDONE
     Indication: ABNORMAL BEHAVIOUR
     Dosage: 2 MILLIGRAM, QD
     Route: 048
     Dates: start: 20180703, end: 20180707
  3. LARGACTIL                          /00011901/ [Suspect]
     Active Substance: CHLORPROMAZINE
     Indication: ABNORMAL BEHAVIOUR
     Dosage: 75 MILLIGRAM, QD
     Route: 048
     Dates: start: 20180626, end: 20180707

REACTIONS (2)
  - Hepatocellular injury [Recovering/Resolving]
  - Pyrexia [Recovered/Resolved]

NARRATIVE: CASE EVENT DATE: 20180706
